FAERS Safety Report 19084083 (Version 1)
Quarter: 2021Q2

REPORT INFORMATION
  Report Type: Report from Study
  Country: US (occurrence: US)
  Receive Date: 20210401
  Receipt Date: 20210401
  Transmission Date: 20210717
  Serious: Yes (Death, Hospitalization, Other)
  Sender: FDA-Public Use
  Company Number: US-JNJFOC-20200115322

PATIENT

DRUGS (4)
  1. POMALIDOMIDE [Suspect]
     Active Substance: POMALIDOMIDE
     Indication: PLASMA CELL MYELOMA
     Route: 065
  2. BORTEZOMIB. [Suspect]
     Active Substance: BORTEZOMIB
     Indication: PLASMA CELL MYELOMA
     Route: 065
  3. LENALIDOMIDE [Suspect]
     Active Substance: LENALIDOMIDE
     Indication: PLASMA CELL MYELOMA
     Route: 065
  4. DARZALEX [Suspect]
     Active Substance: DARATUMUMAB
     Indication: PLASMA CELL MYELOMA
     Route: 065

REACTIONS (16)
  - Pyrexia [Unknown]
  - Neutropenia [Unknown]
  - Diarrhoea [Unknown]
  - Cytomegalovirus infection reactivation [Unknown]
  - Viral upper respiratory tract infection [Unknown]
  - Infusion related reaction [Unknown]
  - Meningitis fungal [Unknown]
  - Influenza [Unknown]
  - Pneumonia [Unknown]
  - Urinary tract infection [Unknown]
  - Epstein-Barr virus infection reactivation [Unknown]
  - Sepsis [Unknown]
  - Bacteraemia [Unknown]
  - Lymphopenia [Unknown]
  - Skin infection [Unknown]
  - Infection [Fatal]
